FAERS Safety Report 4768247-2 (Version None)
Quarter: 2005Q3

REPORT INFORMATION
  Report Type: 
  Country: None (occurrence: None)
  Receive Date: 20050914
  Receipt Date: 20050907
  Transmission Date: 20060218
  Serious: Yes (Other)
  Sender: FDA-Public Use
  Company Number: PHNU2005DE03092

PATIENT
  Age: 19 Year
  Sex: Male

DRUGS (1)
  1. RITALIN [Suspect]
     Dosage: 50 MG/DAY
     Route: 048
     Dates: start: 20050701

REACTIONS (2)
  - HALLUCINATION, AUDITORY [None]
  - PERSECUTORY DELUSION [None]
